FAERS Safety Report 4440450-0 (Version None)
Quarter: 2004Q3

REPORT INFORMATION
  Report Type: 
  Country: None (occurrence: None)
  Receive Date: 20040901
  Receipt Date: 20040901
  Transmission Date: 20050211
  Serious: No
  Sender: FDA-Public Use
  Company Number: None

PATIENT
  Age: 34 Year
  Sex: Female

DRUGS (6)
  1. PAROXETINE  30 MG [Suspect]
     Dosage: 30 MG QD ORAL
     Route: 048
  2. BENZTROPINE MESYLATE [Concomitant]
  3. CLOZAPINE [Concomitant]
  4. FLUPHENAZINE [Concomitant]
  5. RANITIDINE [Concomitant]
  6. VALPROIC ACID [Concomitant]

REACTIONS (4)
  - AGITATION [None]
  - DIARRHOEA [None]
  - DIZZINESS [None]
  - SCREAMING [None]
